FAERS Safety Report 10575438 (Version 7)
Quarter: 2015Q1

REPORT INFORMATION
  Report Type: Spontaneous
  Country: US (occurrence: None)
  Receive Date: 20141107
  Receipt Date: 20150224
  Transmission Date: 20150720
  Serious: Yes (Hospitalization)
  Sender: FDA-Public Use
  Company Number: AXC-2014-000673

PATIENT
  Age: 34 Year
  Sex: Male
  Weight: 65 kg

DRUGS (35)
  1. AZTREONAM. [Concomitant]
     Active Substance: AZTREONAM
  2. DORNASE ALFA [Concomitant]
     Active Substance: DORNASE ALFA
  3. COUMADIN /00014802/ (WARFARIN SODIUM) [Concomitant]
  4. PANTOPRAZOLE [Concomitant]
     Active Substance: PANTOPRAZOLE SODIUM
  5. MEPHYTON (PHYTOMENADIONE) [Concomitant]
  6. BACTRIUM DS (SULFAMETHOXAZOLE, TRIMETHOPRIM) [Concomitant]
  7. HEPARIN [Concomitant]
     Active Substance: HEPARIN SODIUM
  8. ZYVOX [Concomitant]
     Active Substance: LINEZOLID
  9. ZENPEP [Suspect]
     Active Substance: PANCRELIPASE\PANCRELIPASE AMYLASE\PANCRELIPASE LIPASE\PANCRELIPASE PROTEASE
     Indication: PANCREATIC INSUFFICIENCY
     Dosage: 6 CAPSULES WITH WITH MEALS, 4 CAPSULES WITH SNACKS
     Route: 048
     Dates: start: 20130910
  10. ALBUTEROL HFA (SALBUTAMOL) AEROSOL (SPRAY AND INHALATION) [Concomitant]
  11. TYLENOL /00020001/ (PARACETAMOL) [Concomitant]
  12. PROTONIX [Concomitant]
     Active Substance: PANTOPRAZOLE SODIUM
  13. ACCUNEB (SALBUTAMOL SULFATE) [Concomitant]
  14. TOBRAMYCIN. [Concomitant]
     Active Substance: TOBRAMYCIN
  15. CULTURELLE (LACTOBACILLUS RHAMNOSUS) [Concomitant]
  16. BENADRYL /00000402/ (DIPHENHYDRAMINE HYDROCHLORIDE) [Concomitant]
  17. LOVENOX [Concomitant]
     Active Substance: ENOXAPARIN SODIUM
  18. CELEXA /00582602/ (CITALOPRAM HYDROBROMIDE) [Concomitant]
  19. VERSED (MIDAZOLAM HYDROCHLORIDE) [Concomitant]
  20. PEG 3350 GRX (MACROGOL 3350) [Concomitant]
  21. IBUPROFEN. [Concomitant]
     Active Substance: IBUPROFEN
  22. ZENPEP [Suspect]
     Active Substance: PANCRELIPASE\PANCRELIPASE AMYLASE\PANCRELIPASE LIPASE\PANCRELIPASE PROTEASE
     Dosage: 6 CAPSULES WITH WITH MEALS, 4 CAPSULES WITH SNACKS
     Route: 048
     Dates: start: 20130910
  23. AZITHROMYCIN [Concomitant]
     Active Substance: AZITHROMYCIN ANHYDROUS
  24. FORTAZ (CEFTAZIDEIME) [Concomitant]
  25. ARIXTRA (FONDAPARINUS SODIUM) [Concomitant]
  26. FENTANYL. [Concomitant]
     Active Substance: FENTANYL
  27. LEVAQUIN [Concomitant]
     Active Substance: LEVOFLOXACIN
  28. TOBRAMYCIN. [Concomitant]
     Active Substance: TOBRAMYCIN
  29. ZENPEP [Suspect]
     Active Substance: PANCRELIPASE\PANCRELIPASE AMYLASE\PANCRELIPASE LIPASE\PANCRELIPASE PROTEASE
     Indication: PANCREATIC ENZYME ABNORMALITY
     Dosage: 6 CAPSULES WITH WITH MEALS, 4 CAPSULES WITH SNACKS
     Route: 048
     Dates: start: 20130910
  30. VITAMIN D3 [Concomitant]
     Active Substance: CHOLECALCIFEROL
  31. CIPROFLOXACIN. [Concomitant]
     Active Substance: CIPROFLOXACIN
  32. TYGACIL [Concomitant]
     Active Substance: TIGECYCLINE
  33. FLUZONE /01389801/ (INFLUENZA VACCINE) [Concomitant]
  34. ZOFRAN /00955301/ (ONDANSETRON) [Concomitant]
  35. AQUADEKS (MULTIVITAMINS) CHEWABLE TABLE [Suspect]
     Active Substance: VITAMINS
     Indication: HYPOVITAMINOSIS
     Dosage: 1 DF, UNK, ORAL
     Route: 048
     Dates: start: 20080101

REACTIONS (8)
  - Abdominal pain lower [None]
  - Abdominal pain [None]
  - Haematochezia [None]
  - Abdominal distension [None]
  - Rectal haemorrhage [None]
  - Faeces hard [None]
  - Constipation [None]
  - Intestinal dilatation [None]

NARRATIVE: CASE EVENT DATE: 20141017
